FAERS Safety Report 7902765-0 (Version None)
Quarter: 2011Q4

REPORT INFORMATION
  Report Type: 
  Country: None (occurrence: None)
  Receive Date: 20111109
  Receipt Date: 20111101
  Transmission Date: 20120403
  Serious: Yes (Hospitalization)
  Sender: FDA-Public Use
  Company Number: US-BIOGENIDEC-2011BI042049

PATIENT
  Age: 59 Year
  Sex: Female

DRUGS (1)
  1. TYSABRI [Suspect]
     Indication: MULTIPLE SCLEROSIS
     Route: 042
     Dates: start: 20080703

REACTIONS (7)
  - PAIN IN EXTREMITY [None]
  - IMPAIRED HEALING [None]
  - ABASIA [None]
  - BACK PAIN [None]
  - HAEMORRHAGE [None]
  - FATIGUE [None]
  - ARTHRALGIA [None]
